FAERS Safety Report 24460367 (Version 1)
Quarter: 2024Q4

REPORT INFORMATION
  Report Type: Report from Study
  Country: CN (occurrence: CN)
  Receive Date: 20241018
  Receipt Date: 20241018
  Transmission Date: 20250114
  Serious: No
  Sender: ROCHE
  Company Number: CN-ROCHE-3535961

PATIENT
  Age: 40 Year
  Sex: Female

DRUGS (7)
  1. RITUXIMAB [Suspect]
     Active Substance: RITUXIMAB
     Indication: Immunosuppression
     Route: 042
  2. MYCOPHENOLATE MOFETIL [Suspect]
     Active Substance: MYCOPHENOLATE MOFETIL
     Indication: Prophylaxis against graft versus host disease
     Route: 065
  3. CYTARABINE [Concomitant]
     Active Substance: CYTARABINE
     Route: 042
  4. BUSULFAN [Concomitant]
     Active Substance: BUSULFAN
     Dosage: 3.2 MG/KG/DAY DIVIDED INTO FOUR TIMES
     Route: 042
  5. CYCLOPHOSPHAMIDE [Concomitant]
     Active Substance: CYCLOPHOSPHAMIDE
     Dosage: 1.8 MG/M2/DAY
     Route: 042
  6. CYCLOSPORINE [Concomitant]
     Active Substance: CYCLOSPORINE
     Indication: Prophylaxis against graft versus host disease
  7. METHOTREXATE [Concomitant]
     Active Substance: METHOTREXATE
     Indication: Prophylaxis against graft versus host disease

REACTIONS (3)
  - Off label use [Unknown]
  - Off label use [Unknown]
  - No adverse event [Unknown]
